FAERS Safety Report 9830891 (Version 2)
Quarter: 2014Q1

REPORT INFORMATION
  Report Type: Report from Study
  Country: US (occurrence: US)
  Receive Date: 20140120
  Receipt Date: 20140120
  Transmission Date: 20141002
  Serious: Yes (Other)
  Sender: FDA-Public Use
  Company Number: PHEH2013US010617

PATIENT
  Sex: Female

DRUGS (2)
  1. TASIGNA [Suspect]
     Indication: CHRONIC MYELOID LEUKAEMIA
     Dosage: 300 MG, BID
     Route: 048
     Dates: start: 20130212
  2. TASIGNA [Suspect]
     Dosage: 300 MG IN MORNING AND 150 MG IN NIGHT

REACTIONS (11)
  - Rectal haemorrhage [Unknown]
  - Papule [Unknown]
  - Rash generalised [Unknown]
  - Fatigue [Unknown]
  - Hot flush [Unknown]
  - Nausea [Unknown]
  - Dyspepsia [Unknown]
  - Haematochezia [Unknown]
  - Depression [Unknown]
  - Anxiety [Unknown]
  - Pain [Unknown]
